FAERS Safety Report 7258300-6 (Version None)
Quarter: 2011Q1

REPORT INFORMATION
  Report Type: 
  Country: None (occurrence: None)
  Receive Date: 20110129
  Receipt Date: 20100713
  Transmission Date: 20110831
  Serious: No
  Sender: FDA-Public Use
  Company Number: US-ABBOTT-10P-163-0657941-00

PATIENT
  Sex: Female
  Weight: 79.45 kg

DRUGS (8)
  1. HUMIRA [Suspect]
     Indication: PSORIASIS
  2. HUMIRA [Suspect]
     Indication: RHEUMATOID ARTHRITIS
     Dates: start: 20080101
  3. LISINOPRIL [Concomitant]
     Indication: HYPERTENSION
  4. UNKNOWN FISH OIL [Concomitant]
     Indication: SUPPLEMENTATION THERAPY
  5. SIMVASTATIN [Concomitant]
     Indication: HYPERCHOLESTEROLAEMIA
  6. MELOXICAM [Concomitant]
     Indication: PRODUCT USED FOR UNKNOWN INDICATION
  7. METFORMIN [Concomitant]
     Indication: DIABETES MELLITUS
  8. METOPROLOL [Concomitant]
     Indication: HYPERTENSION

REACTIONS (5)
  - CONTUSION [None]
  - INJECTION SITE PAIN [None]
  - BLOOD GLUCOSE INCREASED [None]
  - TENDERNESS [None]
  - INJECTION SITE NODULE [None]
